FAERS Safety Report 16539579 (Version 1)
Quarter: 2019Q3

REPORT INFORMATION
  Report Type: Spontaneous
  Country: IE (occurrence: IE)
  Receive Date: 20190708
  Receipt Date: 20190708
  Transmission Date: 20191004
  Serious: Yes (Other)
  Sender: FDA-Public Use
  Company Number: IE-APOTEX-2019AP018137

PATIENT

DRUGS (2)
  1. PRIADEL                            /00033702/ [Suspect]
     Active Substance: LITHIUM CARBONATE
     Indication: PRODUCT USED FOR UNKNOWN INDICATION
     Dosage: UNK
     Route: 065
  2. SEROXAT [Suspect]
     Active Substance: PAROXETINE HYDROCHLORIDE
     Indication: PRODUCT USED FOR UNKNOWN INDICATION
     Dosage: UNK
     Route: 065
     Dates: start: 2010

REACTIONS (26)
  - Rash [Unknown]
  - Aggression [Unknown]
  - Paranoia [Unknown]
  - Dysarthria [Unknown]
  - Psychotic symptom [Unknown]
  - Suicidal ideation [Unknown]
  - Psychiatric symptom [Unknown]
  - Disorientation [Unknown]
  - Burning sensation [Unknown]
  - Disturbance in attention [Unknown]
  - Hallucination [Unknown]
  - Loss of personal independence in daily activities [Unknown]
  - Personality change [Unknown]
  - Nightmare [Unknown]
  - Agitation [Unknown]
  - Anxiety [Unknown]
  - Depressed mood [Unknown]
  - Withdrawal syndrome [Unknown]
  - Facial paralysis [Unknown]
  - Sleep apnoea syndrome [Unknown]
  - Insomnia [Unknown]
  - Headache [Unknown]
  - Heart rate increased [Unknown]
  - Dizziness [Unknown]
  - Unevaluable event [Unknown]
  - Memory impairment [Unknown]
